FAERS Safety Report 23508758 (Version 1)
Quarter: 2024Q1

REPORT INFORMATION
  Report Type: Spontaneous
  Country: KR (occurrence: KR)
  Receive Date: 20240209
  Receipt Date: 20240209
  Transmission Date: 20240410
  Serious: Yes (Other)
  Sender: FDA-Public Use
  Company Number: KR-002147023-NVSC2024KR027097

PATIENT
  Age: 68 Year
  Sex: Male

DRUGS (2)
  1. DIOVAN [Suspect]
     Active Substance: VALSARTAN
     Indication: Hypertension
     Dosage: 40 MG
     Route: 065
     Dates: start: 2009, end: 202306
  2. BISOPROLOL FUMARATE [Concomitant]
     Active Substance: BISOPROLOL FUMARATE
     Indication: Product used for unknown indication
     Dosage: UNK
     Route: 065
     Dates: start: 202303

REACTIONS (4)
  - Atrial fibrillation [Unknown]
  - Dizziness [Unknown]
  - Heart rate decreased [Unknown]
  - Intentional dose omission [Unknown]
